FAERS Safety Report 5225577-8 (Version None)
Quarter: 2007Q1

REPORT INFORMATION
  Report Type: 
  Country: None (occurrence: None)
  Receive Date: 20061201
  Receipt Date: 20061018
  Transmission Date: 20070707
  Serious: Yes (Hospitalization)
  Sender: FDA-Public Use
  Company Number: US200607005102

PATIENT
  Age: 89 Year
  Sex: Female
  Weight: 61 kg

DRUGS (9)
  1. CYMBALTA [Suspect]
     Indication: PAIN
     Dosage: SEE IMAGE
     Dates: start: 20060627
  2. CYMBALTA [Suspect]
     Indication: PAIN
     Dosage: SEE IMAGE
     Dates: start: 20060827
  3. DEPAKOTE [Concomitant]
  4. LEVOTHYROXINE SODIUM [Concomitant]
  5. ULTRAM [Concomitant]
  6. NEURONTIN [Concomitant]
  7. REMERON /SCH/(MIRTAZAPINE) [Concomitant]
  8. VICODIN [Concomitant]
  9. PREGABALIN (PREGABALIN) [Concomitant]

REACTIONS (5)
  - AGITATION [None]
  - ATRIAL FIBRILLATION [None]
  - CONFUSIONAL STATE [None]
  - HYPOMANIA [None]
  - SYNCOPE [None]
